FAERS Safety Report 12663064 (Version 1)
Quarter: 2016Q3

REPORT INFORMATION
  Report Type: Spontaneous
  Country: US (occurrence: None)
  Receive Date: 20160817
  Receipt Date: 20160817
  Transmission Date: 20161109
  Serious: Yes (Hospitalization, Other)
  Sender: FDA-Public Use
  Company Number: None

PATIENT
  Age: 60 Year
  Sex: Male
  Weight: 58.97 kg

DRUGS (2)
  1. CANNABIS [Concomitant]
     Active Substance: CANNABIS SATIVA SUBSP. INDICA TOP
  2. TAMSULOSIN [Suspect]
     Active Substance: TAMSULOSIN
     Indication: PROSTATE EXAMINATION ABNORMAL
     Dates: start: 20160807, end: 20160811

REACTIONS (3)
  - Economic problem [None]
  - Product substitution issue [None]
  - Amnesia [None]

NARRATIVE: CASE EVENT DATE: 20160808
